FAERS Safety Report 9300481 (Version 1)
Quarter: 2013Q1

REPORT INFORMATION
  Report Type: Spontaneous
  Country: US (occurrence: None)
  Receive Date: 20130107
  Receipt Date: 20130107
  Transmission Date: 20140127
  Serious: Yes (Other)
  Sender: FDA-Public Use
  Company Number: PHEH2012US020490

PATIENT
  Age: 45 Year
  Sex: Female

DRUGS (13)
  1. GILENYA [Suspect]
     Indication: MULTIPLE SCLEROSIS
     Route: 048
     Dates: start: 20120606, end: 20121012
  2. LISINOPRIL (LISINOPRIL) [Concomitant]
  3. TIZANIDINE (TIZANIDINE) [Concomitant]
  4. TYLENOL (PARACETAMOL) [Concomitant]
  5. SPIRONOLACTONE (SPIRONOLACTONE) [Concomitant]
  6. AMBIEN (ZOLPIDEM TARTRATE) [Concomitant]
  7. DOXYCYCLINE (DOXYCYCLINE) [Concomitant]
  8. MOMETASONE (MOMETASONE) [Concomitant]
  9. AMLODIPINE BESILATE (AMLODIPINE BESILATE) [Concomitant]
  10. DICLOFENAC (DICLOFENAC) [Concomitant]
  11. ALBUTEROL (SALBUTAMOL) [Concomitant]
  12. LORAZEPAM (LORAZEPAM) [Concomitant]
  13. FERROUS SULFATE (FERROUS SULFATE) [Concomitant]

REACTIONS (4)
  - Herpes zoster [None]
  - Drooling [None]
  - Multiple sclerosis relapse [None]
  - Withdrawal syndrome [None]
